FAERS Safety Report 19828207 (Version 1)
Quarter: 2021Q3

REPORT INFORMATION
  Report Type: Spontaneous
  Country: DE (occurrence: DE)
  Receive Date: 20210914
  Receipt Date: 20210914
  Transmission Date: 20211014
  Serious: Yes (Other)
  Sender: FDA-Public Use
  Company Number: DE-ASTRAZENECA-2021A720436

PATIENT
  Age: 72 Year
  Sex: Female

DRUGS (1)
  1. TRIXEO AEROSPHERE [Suspect]
     Active Substance: BUDESONIDE\FORMOTEROL\GLYCOPYRRONIUM
     Route: 055

REACTIONS (4)
  - Cough [Unknown]
  - Condition aggravated [Unknown]
  - Pulmonary function test decreased [Unknown]
  - Eosinophil count increased [Unknown]
